FAERS Safety Report 9598111 (Version 1)
Quarter: 2013Q4

REPORT INFORMATION
  Report Type: Spontaneous
  Country: US (occurrence: US)
  Receive Date: 20131004
  Receipt Date: 20131004
  Transmission Date: 20140711
  Serious: No
  Sender: FDA-Public Use
  Company Number: US-AMGEN-USASP2013022544

PATIENT
  Age: 21 Year
  Sex: Female
  Weight: 74.83 kg

DRUGS (7)
  1. ENBREL [Suspect]
     Indication: PRODUCT USED FOR UNKNOWN INDICATION
     Dosage: 50 MG, QWK
     Route: 058
  2. METHOTREXATE [Concomitant]
     Dosage: 2.5 MG, UNK
  3. HYDROCODONE/APAP [Concomitant]
     Dosage: 5-500 MG
  4. DEPO-PROVERA [Concomitant]
     Dosage: 150 MG/ML, UNK
  5. SYMBICORT [Concomitant]
     Dosage: AER 80-4.5
  6. PROAIR HFA [Concomitant]
     Dosage: AER
  7. FOLIC ACID [Concomitant]
     Dosage: UNK

REACTIONS (2)
  - Therapeutic response decreased [Unknown]
  - Psoriatic arthropathy [Unknown]
